FAERS Safety Report 7910042-7 (Version None)
Quarter: 2011Q4

REPORT INFORMATION
  Report Type: 
  Country: None (occurrence: None)
  Receive Date: 20111111
  Receipt Date: 20111026
  Transmission Date: 20120403
  Serious: Yes (Disabling, Other)
  Sender: FDA-Public Use
  Company Number: AU-ROCHE-1007594

PATIENT
  Age: 61 Year
  Sex: Male

DRUGS (5)
  1. MYCOPHENOLATE MOFETIL [Suspect]
     Indication: PRODUCT USED FOR UNKNOWN INDICATION
  2. IMMUNE GLOBULIN NOS [Concomitant]
  3. VALGANCICLOVIR [Concomitant]
  4. CIPRO [Concomitant]
  5. TACROLIMUS [Concomitant]

REACTIONS (13)
  - NEPHROPATHY TOXIC [None]
  - BACK PAIN [None]
  - STAPHYLOCOCCAL INFECTION [None]
  - CYTOMEGALOVIRUS INFECTION [None]
  - POLYOMAVIRUS-ASSOCIATED NEPHROPATHY [None]
  - FEBRILE NEUTROPENIA [None]
  - BK VIRUS INFECTION [None]
  - HEPATITIS [None]
  - HYPOGAMMAGLOBULINAEMIA [None]
  - IMMUNE RECONSTITUTION SYNDROME [None]
  - RENAL IMPAIRMENT [None]
  - RENAL HYPERTENSION [None]
  - PYREXIA [None]
